FAERS Safety Report 17328917 (Version 1)
Quarter: 2020Q1

REPORT INFORMATION
  Report Type: Spontaneous
  Country: CA (occurrence: CA)
  Receive Date: 20200127
  Receipt Date: 20200127
  Transmission Date: 20200409
  Serious: Yes (Hospitalization, Other)
  Sender: FDA-Public Use
  Company Number: CA-AVION PHARMACEUTICALS, LLC-2079439

PATIENT
  Age: 40 Year
  Sex: Female

DRUGS (1)
  1. BALCOLTRA [Suspect]
     Active Substance: ETHINYL ESTRADIOL\LEVONORGESTREL
     Route: 019

REACTIONS (9)
  - Thrombocytopenia [Recovering/Resolving]
  - Chills [Recovering/Resolving]
  - Abdominal pain lower [Recovering/Resolving]
  - Acute kidney injury [Recovering/Resolving]
  - Hypotension [Recovering/Resolving]
  - Fatigue [Recovering/Resolving]
  - Pyrexia [Recovering/Resolving]
  - Sinus tachycardia [Recovering/Resolving]
  - Toxic shock syndrome streptococcal [Recovering/Resolving]
